FAERS Safety Report 20770949 (Version 3)
Quarter: 2022Q2

REPORT INFORMATION
  Report Type: Spontaneous
  Country: JP (occurrence: None)
  Receive Date: 20220429
  Receipt Date: 20220513
  Transmission Date: 20220721
  Serious: Yes (Death)
  Sender: FDA-Public Use
  Company Number: 2022A126478

PATIENT
  Age: 24049 Day
  Sex: Male
  Weight: 55 kg

DRUGS (4)
  1. IMFINZI [Suspect]
     Active Substance: DURVALUMAB
     Indication: Small cell lung cancer
     Route: 041
     Dates: start: 20210927, end: 20211207
  2. IMFINZI [Suspect]
     Active Substance: DURVALUMAB
     Indication: Small cell lung cancer
     Route: 041
     Dates: start: 20220105, end: 20220302
  3. ETOPOSIDE [Concomitant]
     Active Substance: ETOPOSIDE
     Indication: Small cell lung cancer
     Dosage: DOSE UNKNOWN, ON DAY 1, 2, AND 3 OF EACH CYCLE
     Route: 065
     Dates: start: 20210927, end: 20211209
  4. CISPLATIN [Concomitant]
     Active Substance: CISPLATIN
     Indication: Small cell lung cancer
     Route: 065
     Dates: start: 20210927, end: 20211207

REACTIONS (1)
  - Interstitial lung disease [Fatal]

NARRATIVE: CASE EVENT DATE: 20220308
